FAERS Safety Report 24585126 (Version 1)
Quarter: 2024Q4

REPORT INFORMATION
  Report Type: Spontaneous
  Country: US (occurrence: US)
  Receive Date: 20241106
  Receipt Date: 20241106
  Transmission Date: 20250115
  Serious: No
  Sender: CYCLE PHARMACEUTICALS
  Company Number: US-CYCLE PHARMACEUTICALS LTD-2024-CYC-000109

PATIENT

DRUGS (2)
  1. NITYR [Suspect]
     Active Substance: NITISINONE
     Indication: Product used for unknown indication
     Dosage: 10 MG, QD
     Route: 048
  2. NITYR [Suspect]
     Active Substance: NITISINONE
     Indication: Product used for unknown indication
     Dosage: 10 MG, QD
     Route: 048

REACTIONS (1)
  - Product dispensing error [Recovered/Resolved]
